FAERS Safety Report 19497485 (Version 1)
Quarter: 2021Q3

REPORT INFORMATION
  Report Type: Report from Study
  Country: NL (occurrence: NL)
  Receive Date: 20210706
  Receipt Date: 20210706
  Transmission Date: 20211014
  Serious: Yes (Other)
  Sender: FDA-Public Use
  Company Number: NL-VER-202100107

PATIENT
  Sex: Male

DRUGS (1)
  1. TRIPTORELIN PAMOATE [Suspect]
     Active Substance: TRIPTORELIN PAMOATE
     Indication: PROSTATE CANCER
     Dosage: THE OTHER BATCH NUMBERS WERE T01810 ?AND T09542.
     Route: 030
     Dates: start: 20180628

REACTIONS (1)
  - Terminal state [Unknown]
